FAERS Safety Report 10609825 (Version 1)
Quarter: 2014Q4

REPORT INFORMATION
  Report Type: Spontaneous
  Country: JP (occurrence: None)
  Receive Date: 20141124
  Receipt Date: 20141124
  Transmission Date: 20150529
  Serious: Yes (Hospitalization)
  Sender: FDA-Public Use
  Company Number: A201314232

PATIENT
  Sex: Female
  Weight: 2.4 kg

DRUGS (5)
  1. ZIDOVUDINE (ZIDOVUDINE) CAPSULE [Suspect]
     Active Substance: ZIDOVUDINE
     Indication: HIV INFECTION
     Route: 064
  2. LAMIVUDINE (LAMIVUDINE) TABLET [Suspect]
     Active Substance: LAMIVUDINE
     Indication: HIV INFECTION
     Route: 064
  3. KALETRA [Suspect]
     Active Substance: LOPINAVIR\RITONAVIR
     Route: 064
  4. RETROVIR (ZIDOVUDINE) [Concomitant]
  5. RETROVIR [Suspect]
     Active Substance: ZIDOVUDINE
     Route: 064

REACTIONS (2)
  - Low birth weight baby [None]
  - Respiratory disorder neonatal [None]
